FAERS Safety Report 15012941 (Version 1)
Quarter: 2018Q2

REPORT INFORMATION
  Report Type: Spontaneous
  Country: US (occurrence: US)
  Receive Date: 20180522
  Receipt Date: 20180522
  Transmission Date: 20180711
  Serious: No
  Sender: FDA-Public Use
  Company Number: None

PATIENT
  Age: 61 Year
  Sex: Female

DRUGS (15)
  1. MIRALAX [Concomitant]
     Active Substance: POLYETHYLENE GLYCOL 3350
  2. SODIUM BICARBONATE. [Concomitant]
     Active Substance: SODIUM BICARBONATE
  3. LINZESS [Concomitant]
     Active Substance: LINACLOTIDE
  4. POTASSIUM [Concomitant]
     Active Substance: POTASSIUM
  5. SEROQUEL [Concomitant]
     Active Substance: QUETIAPINE FUMARATE
  6. TRAMADOL. [Concomitant]
     Active Substance: TRAMADOL
  7. MAGNESIUM OXIDE. [Concomitant]
     Active Substance: MAGNESIUM OXIDE
  8. PROPRANOLOL [Concomitant]
     Active Substance: PROPRANOLOL HYDROCHLORIDE
  9. MAVYRET [Suspect]
     Active Substance: GLECAPREVIR\PIBRENTASVIR
     Indication: HEPATITIS C
     Route: 048
     Dates: start: 20180425
  10. TOPIRAMATE. [Concomitant]
     Active Substance: TOPIRAMATE
  11. DRONABINOL. [Concomitant]
     Active Substance: DRONABINOL
  12. OMEPRAZOLE. [Concomitant]
     Active Substance: OMEPRAZOLE
  13. FLUOXETINE [Concomitant]
     Active Substance: FLUOXETINE HYDROCHLORIDE
  14. BIOTIN [Concomitant]
     Active Substance: BIOTIN
  15. SYNTHROID [Concomitant]
     Active Substance: LEVOTHYROXINE SODIUM

REACTIONS (2)
  - Condition aggravated [None]
  - Alopecia [None]

NARRATIVE: CASE EVENT DATE: 20180521
